FAERS Safety Report 8499683-9 (Version None)
Quarter: 2012Q3

REPORT INFORMATION
  Report Type: 
  Country: None (occurrence: None)
  Receive Date: 20120710
  Receipt Date: 20120709
  Transmission Date: 20120928
  Serious: Yes (Death, Hospitalization, Other)
  Sender: FDA-Public Use
  Company Number: IL-PFIZER INC-2012163393

PATIENT
  Sex: Male

DRUGS (2)
  1. XALKORI [Suspect]
     Dosage: 250 MG, 2X/DAY
     Route: 048
  2. XALKORI [Suspect]
     Indication: LUNG CANCER METASTATIC
     Dosage: 200 MG, 2X/DAY
     Route: 048

REACTIONS (2)
  - RESPIRATORY DISTRESS [None]
  - PULMONARY EMBOLISM [None]
